FAERS Safety Report 6104326-5 (Version None)
Quarter: 2009Q1

REPORT INFORMATION
  Report Type: 
  Country: None (occurrence: None)
  Receive Date: 20090302
  Receipt Date: 20090220
  Transmission Date: 20090719
  Serious: Yes (Hospitalization)
  Sender: FDA-Public Use
  Company Number: 2009JP000495

PATIENT
  Age: 66 Year
  Sex: Male
  Weight: 48.5 kg

DRUGS (5)
  1. VESICARE [Suspect]
     Indication: DYSURIA
     Dosage: 5 MG, UID/QD, ORAL
     Route: 048
     Dates: start: 20081210, end: 20090108
  2. ROHYPNOL(FLUNITRAZEPAM) TABLET, 2MG [Suspect]
     Indication: INSOMNIA
     Dosage: 1 MG, PRN, ORAL
     Route: 048
     Dates: start: 20081002, end: 20090108
  3. CELECOX (CELECOXIB) TABLET [Concomitant]
  4. MUCOSTA (REBAMIPIDE) TABLET [Concomitant]
  5. DRAMAMINE TABLET [Concomitant]

REACTIONS (1)
  - WHITE BLOOD CELL COUNT DECREASED [None]
